FAERS Safety Report 22622694 (Version 1)
Quarter: 2023Q2

REPORT INFORMATION
  Report Type: Spontaneous
  Country: US (occurrence: US)
  Receive Date: 20230621
  Receipt Date: 20230621
  Transmission Date: 20230721
  Serious: No
  Sender: FDA-Public Use
  Company Number: US-RICONPHARMA, LLC-2023RIC000012

PATIENT

DRUGS (2)
  1. SCOPOLAMINE [Suspect]
     Active Substance: SCOPOLAMINE
     Indication: Vertigo
     Dosage: 1 MG/ 3DAY
     Route: 062
     Dates: start: 2021
  2. SCOPOLAMINE [Suspect]
     Active Substance: SCOPOLAMINE
     Indication: Vomiting

REACTIONS (9)
  - Application site dryness [Unknown]
  - Skin erosion [Unknown]
  - Pruritus [Unknown]
  - Application site erythema [Unknown]
  - Vomiting [Unknown]
  - Product adhesion issue [Unknown]
  - Product administered at inappropriate site [Unknown]
  - Product prescribing error [Unknown]
  - Product use in unapproved indication [Unknown]
